FAERS Safety Report 5822945-8 (Version None)
Quarter: 2008Q3

REPORT INFORMATION
  Report Type: 
  Country: None (occurrence: None)
  Receive Date: 20080724
  Receipt Date: 20080724
  Transmission Date: 20090109
  Serious: Yes (Other)
  Sender: FDA-Public Use
  Company Number: None

PATIENT
  Sex: Male
  Weight: 88.4514 kg

DRUGS (2)
  1. MULTIHANCE [Suspect]
     Indication: ARTHROGRAM
     Dosage: 15 ML SINGLE INJECTION
     Dates: start: 20080604, end: 20080604
  2. MULTIHANCE [Suspect]
     Indication: NUCLEAR MAGNETIC RESONANCE IMAGING
     Dosage: 15 ML SINGLE INJECTION
     Dates: start: 20080604, end: 20080604

REACTIONS (6)
  - CONTRAST MEDIA REACTION [None]
  - DIARRHOEA [None]
  - INFUSION RELATED REACTION [None]
  - NAUSEA [None]
  - URTICARIA [None]
  - VOMITING [None]
